FAERS Safety Report 25743087 (Version 1)
Quarter: 2025Q3

REPORT INFORMATION
  Report Type: Spontaneous
  Country: GB (occurrence: GB)
  Receive Date: 20250830
  Receipt Date: 20250830
  Transmission Date: 20251021
  Serious: Yes (Death, Life-Threatening, Hospitalization)
  Sender: MICRO LABS
  Company Number: GB-MLMSERVICE-20250812-PI612272-00057-1

PATIENT
  Age: 77 Year
  Sex: Female

DRUGS (4)
  1. ATORVASTATIN [Suspect]
     Active Substance: ATORVASTATIN
     Indication: Product used for unknown indication
     Dosage: THE DOSE OF ATORVASTATIN WAS INCREASED FROM 40 MG TO 80 MG ONCE DAILY APPROXIMATELY 6 MONTHS AGO.
  2. ASPIRIN [Concomitant]
     Active Substance: ASPIRIN
     Indication: Product used for unknown indication
  3. DONEPEZIL [Concomitant]
     Active Substance: DONEPEZIL
     Indication: Product used for unknown indication
     Dosage: FOR THE LAST 5 YEARS
  4. THYROXINE [Concomitant]
     Active Substance: LEVOTHYROXINE
     Indication: Product used for unknown indication
     Dosage: FOR THE LAST 15 YEARS

REACTIONS (6)
  - Multiple organ dysfunction syndrome [Fatal]
  - Acute kidney injury [Unknown]
  - Pleural effusion [Unknown]
  - Ascites [Unknown]
  - Hepatitis acute [Unknown]
  - Rhabdomyolysis [Unknown]
